FAERS Safety Report 6876863-7 (Version None)
Quarter: 2010Q3

REPORT INFORMATION
  Report Type: 
  Country: None (occurrence: None)
  Receive Date: 20100727
  Receipt Date: 20100720
  Transmission Date: 20110219
  Serious: Yes (Death)
  Sender: FDA-Public Use
  Company Number: SE-ROCHE-716519

PATIENT

DRUGS (3)
  1. CAPECITABINE [Suspect]
     Indication: GASTROINTESTINAL CARCINOMA
     Dosage: STOPPED FOR TWO DAYS
     Route: 048
     Dates: start: 20090911, end: 20090914
  2. CAPECITABINE [Suspect]
     Route: 048
     Dates: end: 20091218
  3. TAXOTERE [Suspect]
     Indication: GASTROINTESTINAL CARCINOMA
     Dosage: FORM: INFUSION
     Route: 042
     Dates: end: 20091218

REACTIONS (1)
  - DEATH [None]
